FAERS Safety Report 7998477-8 (Version None)
Quarter: 2011Q4

REPORT INFORMATION
  Report Type: 
  Country: None (occurrence: None)
  Receive Date: 20111221
  Receipt Date: 20111214
  Transmission Date: 20120403
  Serious: Yes (Hospitalization, Other)
  Sender: FDA-Public Use
  Company Number: BR-BIOMARINP-000283

PATIENT
  Sex: Female
  Weight: 16 kg

DRUGS (1)
  1. NAGLAZYME [Suspect]
     Indication: MUCOPOLYSACCHARIDOSIS VI
     Route: 041
     Dates: start: 20070927

REACTIONS (3)
  - SPINAL CORD COMPRESSION [None]
  - HYPOAESTHESIA [None]
  - NECK PAIN [None]
